FAERS Safety Report 6127906-X (Version None)
Quarter: 2009Q1

REPORT INFORMATION
  Report Type: 
  Country: None (occurrence: None)
  Receive Date: 20090323
  Receipt Date: 20090313
  Transmission Date: 20090719
  Serious: Yes (Hospitalization)
  Sender: FDA-Public Use
  Company Number: US-BAXTER-2009BH004154

PATIENT
  Age: 60 Year
  Sex: Female
  Weight: 78 kg

DRUGS (2)
  1. ENDOXAN BAXTER [Suspect]
     Indication: BREAST CANCER
     Route: 065
     Dates: start: 20090220, end: 20090220
  2. ADRIAMYCIN PFS [Suspect]
     Indication: BREAST CANCER
     Route: 065
     Dates: start: 20090220, end: 20090220

REACTIONS (1)
  - THROMBOSIS [None]
